FAERS Safety Report 11245051 (Version 2)
Quarter: 2016Q1

REPORT INFORMATION
  Report Type: Spontaneous
  Country: US (occurrence: US)
  Receive Date: 20150707
  Receipt Date: 20160201
  Transmission Date: 20160525
  Serious: Yes (Hospitalization, Other)
  Sender: FDA-Public Use
  Company Number: US-DSJP-DSU-2015-120664

PATIENT

DRUGS (4)
  1. BENICAR HCT [Suspect]
     Active Substance: HYDROCHLOROTHIAZIDE\OLMESARTAN MEDOXOMIL
     Dosage: 40/12.5 MG, QD
     Route: 048
  2. BENICAR HCT [Suspect]
     Active Substance: HYDROCHLOROTHIAZIDE\OLMESARTAN MEDOXOMIL
     Indication: HYPERTENSION
     Dosage: 20/12.5MG, QD
     Route: 048
     Dates: start: 2004, end: 2008
  3. BENICAR [Suspect]
     Active Substance: OLMESARTAN MEDOXOMIL
     Indication: HYPERTENSION
     Dosage: 40 MG, UNK
     Route: 048
     Dates: start: 2007
  4. BENICAR [Suspect]
     Active Substance: OLMESARTAN MEDOXOMIL
     Dosage: UNK
     Route: 048
     Dates: start: 2002

REACTIONS (14)
  - Haematemesis [Unknown]
  - Cholelithiasis [Unknown]
  - Renal failure [Unknown]
  - Malabsorption [Unknown]
  - Haemorrhoids [Unknown]
  - Polyp [Unknown]
  - Umbilical hernia [Unknown]
  - Rectal haemorrhage [Unknown]
  - Hiatus hernia [Unknown]
  - Constipation [Unknown]
  - Diverticulum intestinal [Unknown]
  - Faeces discoloured [Unknown]
  - Oesophageal candidiasis [Unknown]
  - Hepatitis [Unknown]

NARRATIVE: CASE EVENT DATE: 20140123
